FAERS Safety Report 4823002-X (Version None)
Quarter: 2005Q4

REPORT INFORMATION
  Report Type: 
  Country: None (occurrence: None)
  Receive Date: 20051108
  Receipt Date: 20051027
  Transmission Date: 20060501
  Serious: Yes (Other)
  Sender: FDA-Public Use
  Company Number: US-JNJFOC-20051100032

PATIENT
  Sex: Male
  Weight: 70.31 kg

DRUGS (3)
  1. RAZADYNE [Suspect]
     Route: 048
  2. RAZADYNE [Suspect]
     Route: 048
  3. RAZADYNE [Suspect]
     Indication: DRUG USE FOR UNKNOWN INDICATION
     Route: 048

REACTIONS (2)
  - NAUSEA [None]
  - RETINAL DETACHMENT [None]
